FAERS Safety Report 4887800-9 (Version None)
Quarter: 2006Q1

REPORT INFORMATION
  Report Type: 
  Country: None (occurrence: None)
  Receive Date: 20060123
  Receipt Date: 20030716
  Transmission Date: 20060701
  Serious: Yes (Other)
  Sender: FDA-Public Use
  Company Number: GB-ROCHE-342526

PATIENT

DRUGS (2)
  1. NEOTIGASON [Suspect]
     Indication: PITYRIASIS RUBRA PILARIS
     Dates: start: 19950103, end: 20010418
  2. NEOTIGASON [Suspect]
     Dates: start: 20010419, end: 20010824

REACTIONS (3)
  - DRUG EXPOSURE BEFORE PREGNANCY [None]
  - NO ADVERSE EFFECT [None]
  - PREGNANCY [None]
